FAERS Safety Report 8462425-7 (Version None)
Quarter: 2012Q2

REPORT INFORMATION
  Report Type: 
  Country: None (occurrence: None)
  Receive Date: 20120625
  Receipt Date: 20120614
  Transmission Date: 20120825
  Serious: No
  Sender: FDA-Public Use
  Company Number: TR-NOVOPROD-352435

PATIENT
  Age: 72 Year
  Sex: Male
  Weight: 79.2 kg

DRUGS (2)
  1. VICTOZA [Suspect]
     Dosage: 1.8 MG, QD
     Route: 058
     Dates: start: 20120319
  2. VICTOZA [Suspect]
     Indication: TYPE 2 DIABETES MELLITUS
     Dosage: 1.8 MG, QD
     Route: 058
     Dates: start: 20120123, end: 20120315

REACTIONS (1)
  - COLORECTAL CANCER [None]
